FAERS Safety Report 6370651-6 (Version None)
Quarter: 2009Q3

REPORT INFORMATION
  Report Type: 
  Country: None (occurrence: None)
  Receive Date: 20090918
  Receipt Date: 20090907
  Transmission Date: 20100115
  Serious: Yes (Hospitalization, Disabling)
  Sender: FDA-Public Use
  Company Number: 2009-02670

PATIENT
  Age: 65 Year
  Sex: Male
  Weight: 76 kg

DRUGS (19)
  1. VELCADE [Suspect]
     Indication: MULTIPLE MYELOMA
     Dosage: 2.6 MG, INTRAVENOUS
     Route: 058
     Dates: start: 20080627, end: 20090627
  2. ACYCLOVIR [Concomitant]
  3. ASPIRIN [Concomitant]
  4. BISOPROLOL FUMARATE [Concomitant]
  5. LEVETIRACETAM [Concomitant]
  6. PANTOPRAZOLE SODIUM [Concomitant]
  7. MIRTAZAPINE (MIRTRAZAPINE) [Concomitant]
  8. VORICONAZOLE [Concomitant]
  9. VITAMIN B1 TAB [Concomitant]
  10. MORPHINE SULFATE INJ [Concomitant]
  11. LEVOFLOXACIN [Concomitant]
  12. FENTANYL-100 [Concomitant]
  13. METIMAZOL (THIAMAZOLE) [Concomitant]
  14. GRANISETRON  HCL [Concomitant]
  15. CEFTRIAXONE [Concomitant]
  16. PHYTOMENADION (PHYTOMENADION) [Concomitant]
  17. TRAMADOL HCL [Concomitant]
  18. KALIUM (POTASSIUM CHLORIDE) [Concomitant]
  19. PIRITRAMIDE (PIRITRAMIDE) [Concomitant]

REACTIONS (3)
  - CONDITION AGGRAVATED [None]
  - DELIRIUM [None]
  - DISORIENTATION [None]
